FAERS Safety Report 23751001 (Version 1)
Quarter: 2024Q2

REPORT INFORMATION
  Report Type: Other
  Country: CN (occurrence: None)
  Receive Date: 20240417
  Receipt Date: 20240417
  Transmission Date: 20240715
  Serious: Yes (Other)
  Sender: FDA-Public Use
  Company Number: CN-ROCHE-3544153

PATIENT

DRUGS (3)
  1. BEVACIZUMAB [Suspect]
     Active Substance: BEVACIZUMAB
     Indication: Colorectal cancer metastatic
     Route: 065
  2. CAPECITABINE [Suspect]
     Active Substance: CAPECITABINE
     Indication: Colorectal cancer metastatic
     Dosage: FOR DAY1-14, FOLLOWED BY A 7-DAY BREAK FOR 21 DAYS AS AN CYCLE
     Route: 048
  3. OXALIPLATIN [Suspect]
     Active Substance: OXALIPLATIN
     Indication: Colorectal cancer metastatic
     Dosage: 2 H ON DAY 1
     Route: 041

REACTIONS (4)
  - Gastrointestinal disorder [Unknown]
  - Myelosuppression [Unknown]
  - Liver injury [Unknown]
  - Neurotoxicity [Unknown]
